FAERS Safety Report 7291074-1 (Version None)
Quarter: 2011Q1

REPORT INFORMATION
  Report Type: 
  Country: None (occurrence: None)
  Receive Date: 20110202
  Receipt Date: 20110121
  Transmission Date: 20110831
  Serious: Yes (Hospitalization)
  Sender: FDA-Public Use
  Company Number: 010698

PATIENT
  Age: 73 Year
  Sex: Male

DRUGS (5)
  1. PLETAL [Suspect]
     Indication: ARTERIOSCLEROSIS OBLITERANS
     Dosage: 100 MG, BID, ORAL
     Route: 048
     Dates: start: 20090520, end: 20091201
  2. ALLOPURINOL [Concomitant]
  3. AMLODIPINE [Concomitant]
  4. OLMETEC (OLMESARTAN MEDOXOMIL) [Concomitant]
  5. GASPORT (FAMOTIDINE) [Concomitant]

REACTIONS (2)
  - CARDIAC FAILURE [None]
  - CHEST PAIN [None]
